FAERS Safety Report 8488502-2 (Version None)
Quarter: 2012Q3

REPORT INFORMATION
  Report Type: 
  Country: None (occurrence: None)
  Receive Date: 20120705
  Receipt Date: 20120626
  Transmission Date: 20120928
  Serious: Yes (Other)
  Sender: FDA-Public Use
  Company Number: US-ASTRAZENECA-2012SE43328

PATIENT
  Age: 72 Year
  Sex: Female

DRUGS (3)
  1. VIMOVO [Concomitant]
  2. AVAPRO [Concomitant]
  3. ZESTRIL [Suspect]
     Route: 048

REACTIONS (5)
  - FEMUR FRACTURE [None]
  - DRUG HYPERSENSITIVITY [None]
  - COUGH [None]
  - BRONCHITIS [None]
  - PAIN IN EXTREMITY [None]
